FAERS Safety Report 22220246 (Version 1)
Quarter: 2023Q2

REPORT INFORMATION
  Report Type: Spontaneous
  Country: SI (occurrence: SI)
  Receive Date: 20230417
  Receipt Date: 20230417
  Transmission Date: 20230721
  Serious: Yes (Death, Hospitalization, Other)
  Sender: FDA-Public Use
  Company Number: SI-002147023-NVSC2023SI085733

PATIENT
  Sex: Male

DRUGS (7)
  1. ACETAMINOPHEN [Suspect]
     Active Substance: ACETAMINOPHEN
     Indication: Pain
     Dosage: 500 MG, PRN (3X1)
     Route: 065
  2. METHYLPREDNISOLONE [Concomitant]
     Active Substance: METHYLPREDNISOLONE
     Indication: Product used for unknown indication
     Dosage: 16 MG, QD
     Route: 065
     Dates: start: 20230220
  3. DEXTROSE [Concomitant]
     Active Substance: DEXTROSE\DEXTROSE MONOHYDRATE
     Indication: Product used for unknown indication
     Dosage: 1000 ML
     Route: 042
  4. SODIUM CHLORIDE [Concomitant]
     Active Substance: SODIUM CHLORIDE
     Indication: Product used for unknown indication
     Dosage: 500 ML
     Route: 065
  5. PANTOPRAZOLE SODIUM [Concomitant]
     Active Substance: PANTOPRAZOLE SODIUM
     Indication: Product used for unknown indication
     Dosage: 40 MG, BID
     Route: 065
  6. FENOFIBRATE [Concomitant]
     Active Substance: FENOFIBRATE
     Indication: Product used for unknown indication
     Dosage: 25 MG, QD
     Route: 065
  7. FENOTEROL HYDROBROMIDE\IPRATROPIUM BROMIDE [Concomitant]
     Active Substance: FENOTEROL HYDROBROMIDE\IPRATROPIUM BROMIDE
     Indication: Product used for unknown indication
     Dosage: 2 ML, TID

REACTIONS (27)
  - Hydrocephalus [Fatal]
  - Transitional cell carcinoma urethra [Fatal]
  - Nervous system disorder [Fatal]
  - Central nervous system lesion [Unknown]
  - Vasogenic cerebral oedema [Unknown]
  - Bronchial carcinoma [Unknown]
  - Brain neoplasm [Unknown]
  - Carcinoid tumour [Unknown]
  - Asphyxia [Unknown]
  - Pleural effusion [Unknown]
  - Pulmonary mass [Unknown]
  - Hilar lymphadenopathy [Unknown]
  - Dizziness [Unknown]
  - Visual impairment [Unknown]
  - Diplopia [Unknown]
  - Vision blurred [Unknown]
  - Dyspnoea [Unknown]
  - Brain oedema [Unknown]
  - Musculoskeletal chest pain [Recovered/Resolved]
  - Pain [Recovered/Resolved]
  - Fatigue [Unknown]
  - Asthenia [Unknown]
  - Malaise [Unknown]
  - Illness [Unknown]
  - Dysphagia [Unknown]
  - Hepatic lesion [Unknown]
  - Drug ineffective [Recovered/Resolved]

NARRATIVE: CASE EVENT DATE: 20220830
